FAERS Safety Report 22066396 (Version 1)
Quarter: 2023Q1

REPORT INFORMATION
  Report Type: Report from Study
  Country: KR (occurrence: None)
  Receive Date: 20230306
  Receipt Date: 20230306
  Transmission Date: 20230417
  Serious: Yes (Other)
  Sender: FDA-Public Use
  Company Number: KR-Eisai Medical Research-EC-2023-135220

PATIENT
  Age: 47 Year
  Sex: Female
  Weight: 36.8 kg

DRUGS (2)
  1. LENVIMA [Suspect]
     Active Substance: LENVATINIB
     Indication: Endometrial cancer
     Route: 048
     Dates: start: 20220622
  2. KEYTRUDA [Suspect]
     Active Substance: PEMBROLIZUMAB
     Indication: Endometrial cancer
     Route: 041
     Dates: start: 20220622, end: 20221231

REACTIONS (1)
  - Rectal perforation [Recovered/Resolved]

NARRATIVE: CASE EVENT DATE: 20230108
